FAERS Safety Report 7506815-5 (Version None)
Quarter: 2011Q2

REPORT INFORMATION
  Report Type: 
  Country: None (occurrence: None)
  Receive Date: 20110526
  Receipt Date: 20110519
  Transmission Date: 20111010
  Serious: Yes (Hospitalization)
  Sender: FDA-Public Use
  Company Number: A0928045A

PATIENT
  Age: 85 Year
  Sex: Female

DRUGS (7)
  1. VOTRIENT [Suspect]
     Indication: METASTASIS
     Dosage: 200MG TWICE PER DAY
     Route: 048
     Dates: start: 20110514, end: 20110518
  2. MULTI-VITAMIN [Concomitant]
  3. SIMVASTATIN [Concomitant]
  4. LASIX [Concomitant]
  5. POTASSIUM CHLORIDE [Concomitant]
  6. METOPROLOL TARTRATE [Concomitant]
  7. ASPIRIN [Concomitant]

REACTIONS (2)
  - PYREXIA [None]
  - CONVULSION [None]
